FAERS Safety Report 8173792-6 (Version None)
Quarter: 2012Q1

REPORT INFORMATION
  Report Type: 
  Country: None (occurrence: None)
  Receive Date: 20120229
  Receipt Date: 20120216
  Transmission Date: 20120608
  Serious: Yes (Hospitalization)
  Sender: FDA-Public Use
  Company Number: PE-ELI_LILLY_AND_COMPANY-PE201202005626

PATIENT
  Age: 83 Year
  Sex: Male

DRUGS (2)
  1. AMIODARONE                         /00133101/ [Concomitant]
  2. CYMBALTA [Suspect]
     Dosage: UNK, UNKNOWN
     Dates: start: 20100101

REACTIONS (2)
  - SYNCOPE [None]
  - HYPOTENSION [None]
